APPROVED DRUG PRODUCT: METFORMIN HYDROCHLORIDE
Active Ingredient: METFORMIN HYDROCHLORIDE
Strength: 850MG
Dosage Form/Route: TABLET;ORAL
Application: A205330 | Product #002
Applicant: AARXION ANDA HOLDING LLC
Approved: Oct 31, 2017 | RLD: No | RS: No | Type: DISCN